FAERS Safety Report 8046162-9 (Version None)
Quarter: 2012Q1

REPORT INFORMATION
  Report Type: 
  Country: None (occurrence: None)
  Receive Date: 20120113
  Receipt Date: 20120111
  Transmission Date: 20120608
  Serious: Yes (Death, Hospitalization)
  Sender: FDA-Public Use
  Company Number: US-CELGENEUS-163-21880-12011154

PATIENT
  Sex: Male

DRUGS (17)
  1. INSULIN GLARGINE [Concomitant]
     Dosage: 18-20 UNITS
     Route: 065
  2. REVLIMID [Suspect]
     Dosage: 5 MILLIGRAM
     Route: 048
     Dates: start: 20111209, end: 20111214
  3. HYDROCHLOROTHIAZIDE [Concomitant]
     Dosage: 25 MILLIGRAM
     Route: 048
  4. ASPIRIN [Concomitant]
     Route: 048
  5. CHLORTHALIDONE [Concomitant]
     Dosage: .5 TABLET
     Route: 048
  6. LOSARTAN POTASSIUM [Concomitant]
     Dosage: 50 MILLIGRAM
     Route: 048
  7. HYDROCODONE 5/ACETAMINOPHEN [Concomitant]
     Dosage: 1-2 TABS
     Route: 048
  8. SIMVASTATIN [Concomitant]
     Route: 048
  9. METOPROLOL TARTRATE [Concomitant]
     Dosage: .5 TABLET
     Route: 048
  10. REVLIMID [Suspect]
     Dosage: 5 MILLIGRAM
     Route: 048
     Dates: start: 20111214, end: 20111220
  11. MULTI-VITAMINS [Concomitant]
     Dosage: 1
     Route: 065
  12. VITAMIN D [Concomitant]
     Dosage: 2 TABLET
     Route: 048
  13. RABEPRAZOLE NA [Concomitant]
     Dosage: 20 MILLIGRAM
     Route: 048
  14. SAW PALMETTO [Concomitant]
     Dosage: 450 MILLIGRAM
     Route: 048
  15. REVLIMID [Suspect]
     Dosage: 5 MILLIGRAM
     Route: 048
     Dates: start: 20111116, end: 20111130
  16. LIRAGLUTIDE [Concomitant]
     Dosage: 5 MILLIGRAM/MILLILITERS
     Route: 065
  17. LECITHIN [Concomitant]
     Dosage: 1200 MILLIGRAM
     Route: 048

REACTIONS (8)
  - INFECTION [None]
  - MYELODYSPLASTIC SYNDROME [None]
  - PRURITUS [None]
  - NEOPLASM PROGRESSION [None]
  - ANAEMIA [None]
  - RENAL IMPAIRMENT [None]
  - DEATH [None]
  - RASH [None]
